FAERS Safety Report 19390786 (Version 3)
Quarter: 2021Q3

REPORT INFORMATION
  Report Type: Spontaneous
  Country: US (occurrence: US)
  Receive Date: 20210608
  Receipt Date: 20210826
  Transmission Date: 20211014
  Serious: Yes (Other)
  Sender: FDA-Public Use
  Company Number: US-PFIZER INC-2021465279

PATIENT
  Age: 47 Year
  Sex: Female

DRUGS (1)
  1. XELJANZ XR [Suspect]
     Active Substance: TOFACITINIB CITRATE
     Indication: RHEUMATOID ARTHRITIS
     Dosage: 11 MG, DAILY
     Route: 048
     Dates: start: 20210422

REACTIONS (8)
  - Dysarthria [Unknown]
  - Myasthenia gravis [Unknown]
  - Depression [Unknown]
  - Fatigue [Unknown]
  - Pain in extremity [Not Recovered/Not Resolved]
  - Limb discomfort [Unknown]
  - Ear infection [Unknown]
  - Muscular weakness [Unknown]

NARRATIVE: CASE EVENT DATE: 2021
